FAERS Safety Report 8910543 (Version 1)
Quarter: 2012Q4

REPORT INFORMATION
  Report Type: 
  Country: US (occurrence: US)
  Receive Date: 20121108
  Receipt Date: 20121108
  Transmission Date: 20130627
  Serious: No
  Sender: FDA-Public Use
  Company Number: US-PFIZER INC-2012278463

PATIENT
  Age: 72 Year
  Sex: Female
  Weight: 90.7 kg

DRUGS (6)
  1. LYRICA [Suspect]
     Dosage: 75 mg, 3x/day
     Route: 048
     Dates: start: 201209
  2. SYNTHROID [Concomitant]
     Indication: THYROID DISORDER
     Dosage: 150 (units unspecified), daily
  3. ATENOLOL [Concomitant]
     Indication: BLOOD PRESSURE HIGH
     Dosage: 50 mg, daily
  4. LASIX [Concomitant]
     Indication: DIURETIC THERAPY
     Dosage: 20 mg, daily
  5. CRESTOR [Concomitant]
     Indication: BLOOD CHOLESTEROL ABNORMAL
     Dosage: 5 mg, daily
  6. PERCOCET [Concomitant]
     Dosage: UNK,every six hours

REACTIONS (2)
  - Hypoaesthesia [Not Recovered/Not Resolved]
  - Paraesthesia oral [Not Recovered/Not Resolved]
